FAERS Safety Report 6903168-8 (Version None)
Quarter: 2010Q3

REPORT INFORMATION
  Report Type: 
  Country: None (occurrence: None)
  Receive Date: 20100803
  Receipt Date: 20080711
  Transmission Date: 20110219
  Serious: No
  Sender: FDA-Public Use
  Company Number: US-PFIZER INC-2008048105

PATIENT
  Sex: Male
  Weight: 93 kg

DRUGS (4)
  1. LYRICA [Suspect]
     Indication: DIABETIC NEUROPATHY
     Dates: start: 20080529
  2. LIPITOR [Concomitant]
  3. TRICOR [Concomitant]
  4. ANTIHYPERTENSIVES [Concomitant]
     Indication: HYPERTENSION

REACTIONS (1)
  - DRUG INEFFECTIVE [None]
